FAERS Safety Report 4834957-1 (Version None)
Quarter: 2005Q4

REPORT INFORMATION
  Report Type: 
  Country: None (occurrence: None)
  Receive Date: 20051114
  Receipt Date: 20050513
  Transmission Date: 20060501
  Serious: Yes (Death, Hospitalization)
  Sender: FDA-Public Use
  Company Number: S05-USA-04849-01

PATIENT
  Age: 15 Year
  Sex: Female

DRUGS (3)
  1. LEXAPRO [Suspect]
     Indication: DEPRESSION
     Dates: start: 20040403, end: 20040424
  2. ACETAMINOPHEN [Suspect]
     Dates: start: 20040424, end: 20040424
  3. ACETAMINOPHEN [Suspect]
     Dates: start: 20040424, end: 20040424

REACTIONS (4)
  - COMPLETED SUICIDE [None]
  - MULTIPLE DRUG OVERDOSE [None]
  - POLYTRAUMATISM [None]
  - SELF INJURIOUS BEHAVIOUR [None]
